FAERS Safety Report 16012464 (Version 4)
Quarter: 2019Q4

REPORT INFORMATION
  Report Type: Spontaneous
  Country: GB (occurrence: GB)
  Receive Date: 20190227
  Receipt Date: 20191112
  Transmission Date: 20200122
  Serious: Yes (Death, Hospitalization, Other)
  Sender: FDA-Public Use
  Company Number: GB-INTERCEPT-PM2019000296

PATIENT
  Age: 44 Year
  Sex: Female
  Weight: 41 kg

DRUGS (15)
  1. URSODEOXYCHOLIC ACID [Concomitant]
     Active Substance: URSODIOL
     Dosage: 750 UNK, UNK
     Dates: start: 20190131
  2. MULTIVITAMIN [Concomitant]
     Active Substance: VITAMINS
  3. VITAMIN B COMPOUND [Concomitant]
  4. FERROUS FUMARATE W/FOLIC ACID [Concomitant]
     Active Substance: FERROUS FUMARATE\FOLIC ACID
  5. BECLOMETASONE [Concomitant]
     Active Substance: BECLOMETHASONE DIPROPIONATE
  6. HYDROXYCHLOROQUINE [Concomitant]
     Active Substance: HYDROXYCHLOROQUINE
  7. OCALIVA [Suspect]
     Active Substance: OBETICHOLIC ACID
     Dosage: 10 MG, QW
     Route: 048
     Dates: start: 20181011, end: 201901
  8. THIAMINE. [Concomitant]
     Active Substance: THIAMINE
  9. OCALIVA [Suspect]
     Active Substance: OBETICHOLIC ACID
     Indication: PRIMARY BILIARY CHOLANGITIS
     Dosage: 5 MG, QW
     Route: 048
     Dates: start: 20180528, end: 20181010
  10. CLENIL [Concomitant]
     Active Substance: BECLOMETHASONE DIPROPIONATE
     Route: 055
  11. CALCICHEW [Concomitant]
     Active Substance: CALCIUM CARBONATE
  12. OMEPRAZOLE. [Concomitant]
     Active Substance: OMEPRAZOLE
  13. FOLIC ACID. [Concomitant]
     Active Substance: FOLIC ACID
  14. LEVOTHYROXINE. [Concomitant]
     Active Substance: LEVOTHYROXINE
  15. SALBUTAMOL [Concomitant]
     Active Substance: ALBUTEROL
     Route: 055

REACTIONS (20)
  - Biliary dilatation [Unknown]
  - Lung infiltration [Unknown]
  - Pyrexia [Unknown]
  - Hypoxia [Unknown]
  - Abdominal distension [Unknown]
  - Hepatic function abnormal [Unknown]
  - Blood bilirubin increased [Unknown]
  - Cholestasis [Unknown]
  - Drug-induced liver injury [Unknown]
  - Ascites [Unknown]
  - Peripheral swelling [Not Recovered/Not Resolved]
  - Hepatomegaly [Unknown]
  - Jaundice [Unknown]
  - Sepsis [Unknown]
  - Hepatic failure [Fatal]
  - Mucosal haemorrhage [Unknown]
  - Platelet count decreased [Unknown]
  - Cough [Unknown]
  - Pneumonia [Fatal]
  - Malaise [Unknown]

NARRATIVE: CASE EVENT DATE: 201812
